FAERS Safety Report 7287649 (Version 7)
Quarter: 2014Q3

REPORT INFORMATION
  Report Type: Spontaneous
  Country: JP (occurrence: JP)
  Receive Date: 20100222
  Receipt Date: 20140908
  Transmission Date: 20150326
  Serious: Yes (Hospitalization, Disabling)
  Sender: FDA-Public Use
  Company Number: JP-BAYER-200910996BYL

PATIENT
  Age: 59 Year
  Sex: Male

DRUGS (11)
  1. PREDONINE [Concomitant]
     Active Substance: PREDNISOLONE\PREDNISOLONE ACETATE\PREDNISOLONE SODIUM SUCCINATE
     Route: 048
  2. LOXONIN [Concomitant]
     Active Substance: LOXOPROFEN SODIUM
     Route: 048
     Dates: start: 200808
  3. BETAFERON [Suspect]
     Active Substance: INTERFERON BETA-1B
     Indication: MULTIPLE SCLEROSIS
     Route: 058
     Dates: start: 200101
  4. PREDONINE [Concomitant]
     Active Substance: PREDNISOLONE\PREDNISOLONE ACETATE\PREDNISOLONE SODIUM SUCCINATE
     Route: 048
  5. GABAPENTIN. [Concomitant]
     Active Substance: GABAPENTIN
     Dosage: 600 MG (DAILY DOSE), TID, ORAL
     Route: 048
     Dates: start: 200901
  6. PREDONINE [Concomitant]
     Active Substance: PREDNISOLONE\PREDNISOLONE ACETATE\PREDNISOLONE SODIUM SUCCINATE
     Route: 048
  7. AMOBAN [Concomitant]
     Active Substance: ZOPICLONE
     Route: 048
     Dates: start: 200706
  8. VIAGRA [Concomitant]
     Active Substance: SILDENAFIL CITRATE
     Route: 048
     Dates: start: 200803
  9. MUCOSTA [Concomitant]
     Active Substance: REBAMIPIDE
     Route: 048
  10. SELBEX [Concomitant]
     Active Substance: TEPRENONE
     Dosage: 150 MG (DAILY DOSE), TID, ORAL
     Route: 048
  11. BETAFERON [Suspect]
     Active Substance: INTERFERON BETA-1B
     Indication: MULTIPLE SCLEROSIS
     Route: 058
     Dates: end: 20090527

REACTIONS (7)
  - Hypoalbuminaemia [Not Recovered/Not Resolved]
  - Upper respiratory tract inflammation [None]
  - Hypoproteinaemia [Not Recovered/Not Resolved]
  - Nephrotic syndrome [Not Recovered/Not Resolved]
  - Dyspnoea exertional [Not Recovered/Not Resolved]
  - Proteinuria [Not Recovered/Not Resolved]
  - Malaise [Not Recovered/Not Resolved]

NARRATIVE: CASE EVENT DATE: 2004
